FAERS Safety Report 7315949-X (Version None)
Quarter: 2011Q1

REPORT INFORMATION
  Report Type: 
  Country: None (occurrence: None)
  Receive Date: 20110218
  Receipt Date: 20110218
  Transmission Date: 20110831
  Serious: Yes (Death)
  Sender: FDA-Public Use
  Company Number: None

PATIENT
  Age: 39 Year
  Sex: Male
  Weight: 68 kg

DRUGS (3)
  1. CISPLATIN [Suspect]
  2. BLEOMYCIN SULFATE [Suspect]
     Indication: GERM CELL CANCER
     Dosage: 30 UNITS WEEKLY IV
     Route: 042
     Dates: start: 20101111, end: 20110118
  3. ETOPOSIDE [Suspect]

REACTIONS (1)
  - DYSPNOEA [None]
